FAERS Safety Report 4315106-5 (Version None)
Quarter: 2004Q1

REPORT INFORMATION
  Report Type: 
  Country: None (occurrence: None)
  Receive Date: 20040309
  Receipt Date: 20040219
  Transmission Date: 20041129
  Serious: Yes (Hospitalization, Other)
  Sender: FDA-Public Use
  Company Number: DE_040213060

PATIENT
  Age: 70 Year
  Sex: Male

DRUGS (3)
  1. GEMZAR [Suspect]
     Indication: METASTATIC NEOPLASM
     Dosage: 1000 MG/M2/PER INFUSION
  2. GEMZAR [Suspect]
     Indication: SQUAMOUS CELL CARCINOMA
     Dosage: 1000 MG/M2/PER INFUSION
  3. CISPLATIN [Concomitant]

REACTIONS (4)
  - LUNG INFILTRATION [None]
  - NEOPLASM PROGRESSION [None]
  - PLEURA CARCINOMA [None]
  - PNEUMONIA [None]
